FAERS Safety Report 10147072 (Version 2)
Quarter: 2014Q2

REPORT INFORMATION
  Report Type: Spontaneous
  Country: US (occurrence: US)
  Receive Date: 20140501
  Receipt Date: 20140613
  Transmission Date: 20141212
  Serious: Yes (Hospitalization)
  Sender: FDA-Public Use
  Company Number: US-VIROPHARMA INCORPORATED-20140422CINRY6213

PATIENT
  Age: 49 Year
  Sex: Female

DRUGS (2)
  1. CINRYZE [Suspect]
     Indication: HEREDITARY ANGIOEDEMA
     Dosage: UNK UNK, UNKNOWN
     Route: 042
     Dates: start: 20121002, end: 201312
  2. CINRYZE [Suspect]
     Indication: PROPHYLAXIS
     Dosage: UNK UNK, UNKNOWN
     Route: 042
     Dates: start: 201405

REACTIONS (2)
  - Hereditary angioedema [Recovered/Resolved]
  - Drug dose omission [Recovered/Resolved]
